FAERS Safety Report 10926684 (Version 5)
Quarter: 2015Q3

REPORT INFORMATION
  Report Type: Spontaneous
  Country: US (occurrence: US)
  Receive Date: 20150318
  Receipt Date: 20150707
  Transmission Date: 20151125
  Serious: No
  Sender: FDA-Public Use
  Company Number: US-PFIZER INC-2015092383

PATIENT
  Age: 54 Year
  Sex: Female
  Weight: 88 kg

DRUGS (2)
  1. XELJANZ [Suspect]
     Active Substance: TOFACITINIB CITRATE
     Indication: RHEUMATOID ARTHRITIS
     Dosage: 5 MG, 2X/DAY
     Route: 048
     Dates: start: 201503, end: 201503
  2. METHOTREXATE [Concomitant]
     Active Substance: METHOTREXATE
     Indication: RHEUMATOID ARTHRITIS
     Dosage: 20 MG, WEEKLY
     Route: 048

REACTIONS (12)
  - Diarrhoea [Recovered/Resolved]
  - Abdominal pain upper [Unknown]
  - Headache [Recovered/Resolved]
  - Pain [Recovered/Resolved]
  - Decreased appetite [Recovered/Resolved]
  - Fatigue [Unknown]
  - Influenza [Unknown]
  - Pyrexia [Recovered/Resolved]
  - Immune system disorder [Unknown]
  - Drug ineffective [Unknown]
  - Anaemia [Unknown]
  - Hypersomnia [Recovered/Resolved]

NARRATIVE: CASE EVENT DATE: 201503
